FAERS Safety Report 14801350 (Version 1)
Quarter: 2018Q2

REPORT INFORMATION
  Report Type: Spontaneous
  Country: US (occurrence: US)
  Receive Date: 20180424
  Receipt Date: 20180424
  Transmission Date: 20180711
  Serious: Yes (Hospitalization, Other)
  Sender: FDA-Public Use
  Company Number: US-ASTRAZENECA-2018SE50919

PATIENT
  Age: 1004 Month
  Sex: Female
  Weight: 44.9 kg

DRUGS (8)
  1. LEKOVIT CA [Concomitant]
     Active Substance: CALCIUM CARBONATE\CHOLECALCIFEROL
     Indication: SUPPLEMENTATION THERAPY
  2. ASPIRIN. [Concomitant]
     Active Substance: ASPIRIN
     Indication: HEART RATE IRREGULAR
  3. HUMIRA [Suspect]
     Active Substance: ADALIMUMAB
     Indication: CROHN^S DISEASE
     Dosage: 40 MG, 1 IN 2 WEEKS
     Route: 058
     Dates: start: 2015
  4. BRILINTA [Suspect]
     Active Substance: TICAGRELOR
     Indication: HEART RATE IRREGULAR
     Route: 048
  5. HYDROXYUREA. [Concomitant]
     Active Substance: HYDROXYUREA
     Indication: PLATELET DISORDER
  6. DOZOL [Concomitant]
     Active Substance: ACETAMINOPHEN\DIPHENHYDRAMINE HYDROCHLORIDE
  7. VITAMIN B12 [Concomitant]
     Active Substance: CYANOCOBALAMIN
     Indication: SUPPLEMENTATION THERAPY
  8. FOSAMAX [Concomitant]
     Active Substance: ALENDRONATE SODIUM
     Indication: OSTEOPOROSIS

REACTIONS (9)
  - Dyspnoea [Recovering/Resolving]
  - Dizziness [Recovering/Resolving]
  - Peripheral swelling [Recovering/Resolving]
  - Blood pressure increased [Unknown]
  - Mitral valve prolapse [Recovering/Resolving]
  - Joint swelling [Unknown]
  - Coronary artery occlusion [Recovered/Resolved]
  - Transient ischaemic attack [Unknown]
  - Blood pressure fluctuation [Recovering/Resolving]

NARRATIVE: CASE EVENT DATE: 201602
